FAERS Safety Report 10733282 (Version 6)
Quarter: 2015Q4

REPORT INFORMATION
  Report Type: Spontaneous
  Country: US (occurrence: US)
  Receive Date: 20150123
  Receipt Date: 20151103
  Transmission Date: 20160304
  Serious: Yes (Hospitalization, Other)
  Sender: FDA-Public Use
  Company Number: US-BAYER-2015-009190

PATIENT
  Age: 27 Year
  Sex: Female
  Weight: 46.26 kg

DRUGS (1)
  1. MIRENA [Suspect]
     Active Substance: LEVONORGESTREL
     Indication: CONTRACEPTION
     Dosage: 20 MCG/24HR, CONT
     Route: 015
     Dates: start: 200610, end: 201109

REACTIONS (10)
  - Drug ineffective [None]
  - Embedded device [None]
  - Pain [None]
  - Depression [None]
  - Emotional distress [None]
  - Pregnancy with contraceptive device [None]
  - Anxiety [None]
  - Habitual abortion [None]
  - Maternal exposure before pregnancy [None]
  - Injury [None]

NARRATIVE: CASE EVENT DATE: 201004
